FAERS Safety Report 6027528-5 (Version None)
Quarter: 2009Q1

REPORT INFORMATION
  Report Type: 
  Country: None (occurrence: None)
  Receive Date: 20090105
  Receipt Date: 20081230
  Transmission Date: 20090719
  Serious: Yes (Hospitalization, Other)
  Sender: FDA-Public Use
  Company Number: DE-AMGEN-UK314500

PATIENT
  Sex: Female
  Weight: 79 kg

DRUGS (19)
  1. NEULASTA [Suspect]
     Indication: CHEMOTHERAPY
     Route: 058
     Dates: start: 20080912
  2. ARELIX [Concomitant]
     Route: 048
  3. MOXONIDINE [Concomitant]
     Route: 048
  4. ASPIRIN [Concomitant]
     Route: 048
  5. ALLOPURINOL [Concomitant]
     Route: 048
  6. NAPROXEN [Concomitant]
     Route: 048
  7. RANITIDINE [Concomitant]
     Route: 048
  8. GABAPENTIN [Concomitant]
     Route: 048
  9. RAMIPRIL [Concomitant]
     Route: 048
  10. BISOPROLOL FUMARATE [Concomitant]
     Route: 048
  11. VIGANTOLETTEN [Concomitant]
     Route: 048
  12. DECORTIN [Concomitant]
     Route: 048
  13. VOMEX A [Concomitant]
     Route: 050
  14. ALLERGOSPASMIN [Concomitant]
     Route: 065
  15. RITUXIMAB [Concomitant]
     Route: 065
  16. ADRIAMYCIN PFS [Concomitant]
  17. CYCLOPHOSPHAMIDE [Concomitant]
  18. VINCRISTINE [Concomitant]
  19. PREDNISOLONE [Concomitant]

REACTIONS (11)
  - CONDITION AGGRAVATED [None]
  - CONSTIPATION [None]
  - CONVULSION [None]
  - DIARRHOEA [None]
  - FATIGUE [None]
  - HYPOTENSION [None]
  - LEUKOPENIA [None]
  - MALAISE [None]
  - NAUSEA [None]
  - NEUTROPENIA [None]
  - PYREXIA [None]
